FAERS Safety Report 16095309 (Version 1)
Quarter: 2019Q1

REPORT INFORMATION
  Report Type: Spontaneous
  Country: GB (occurrence: GB)
  Receive Date: 20190320
  Receipt Date: 20190320
  Transmission Date: 20190418
  Serious: Yes (Death)
  Sender: FDA-Public Use
  Company Number: GB-ASTELLAS-2019US011383

PATIENT

DRUGS (3)
  1. ASPARAGINASE [Concomitant]
     Active Substance: ASPARAGINASE
     Indication: PRODUCT USED FOR UNKNOWN INDICATION
     Dosage: UNK UNK, UNKNOWN FREQ.
     Route: 065
  2. ISAVUCONAZOLE [Suspect]
     Active Substance: ISAVUCONAZOLE
     Indication: PROPHYLAXIS
     Dosage: 200 MG, ONCE DAILY (200 MG,1 IN 1 D)
     Route: 048
  3. ISAVUCONAZOLE [Suspect]
     Active Substance: ISAVUCONAZOLE
     Indication: SYSTEMIC MYCOSIS
     Dosage: 200 MG, THRICE DAILY (200 MG,3 IN 1 D)
     Route: 048

REACTIONS (2)
  - Intestinal perforation [Fatal]
  - Product use in unapproved indication [Unknown]
